FAERS Safety Report 8887173 (Version 2)
Quarter: 2017Q3

REPORT INFORMATION
  Report Type: Spontaneous
  Country: US (occurrence: US)
  Receive Date: 20121105
  Receipt Date: 20170829
  Transmission Date: 20171128
  Serious: Yes (Other)
  Sender: FDA-Public Use
  Company Number: US-PFIZER INC-2012274733

PATIENT
  Age: 75 Year
  Sex: Male
  Weight: 100 kg

DRUGS (2)
  1. LYRICA [Suspect]
     Active Substance: PREGABALIN
     Indication: NEUROPATHY PERIPHERAL
     Dosage: 100 MG, 2X/DAY
  2. LYRICA [Suspect]
     Active Substance: PREGABALIN
     Indication: PAIN
     Dosage: 150 MG, 2X/DAY
     Route: 048
     Dates: start: 2010, end: 2013

REACTIONS (9)
  - Memory impairment [Unknown]
  - Malaise [Recovering/Resolving]
  - Impaired driving ability [Unknown]
  - Thinking abnormal [Unknown]
  - Compression fracture [Unknown]
  - Gait disturbance [Unknown]
  - Dysarthria [Unknown]
  - Fall [Unknown]
  - Drug ineffective [Unknown]

NARRATIVE: CASE EVENT DATE: 2012
